FAERS Safety Report 8530650-2 (Version None)
Quarter: 2012Q3

REPORT INFORMATION
  Report Type: 
  Country: None (occurrence: None)
  Receive Date: 20120723
  Receipt Date: 20120711
  Transmission Date: 20120928
  Serious: Yes (Hospitalization)
  Sender: FDA-Public Use
  Company Number: JP-VERTEX PHARMACEUTICALS INC.-AE-2012-009041

PATIENT
  Age: 48 Year
  Sex: Male

DRUGS (6)
  1. REBETOL [Concomitant]
     Indication: HEPATITIS C
     Route: 048
     Dates: start: 20120521, end: 20120610
  2. PEG-INTRON [Concomitant]
     Indication: HEPATITIS C
     Route: 058
     Dates: start: 20120521
  3. REBETOL [Concomitant]
     Route: 048
     Dates: start: 20120611
  4. TELAVIC (TELAPREVIR) [Suspect]
     Indication: HEPATITIS C
     Route: 048
     Dates: start: 20120521, end: 20120606
  5. SELBEX [Concomitant]
     Route: 048
     Dates: start: 20120521
  6. TELAVIC (TELAPREVIR) [Suspect]
     Route: 048
     Dates: start: 20120611

REACTIONS (1)
  - BLOOD CREATININE INCREASED [None]
